FAERS Safety Report 22867620 (Version 2)
Quarter: 2023Q4

REPORT INFORMATION
  Report Type: Spontaneous
  Country: US (occurrence: US)
  Receive Date: 20230825
  Receipt Date: 20231108
  Transmission Date: 20240110
  Serious: Yes (Hospitalization)
  Sender: FDA-Public Use
  Company Number: US-JNJFOC-20230839757

PATIENT
  Age: 69 Year
  Sex: Female
  Weight: 48.4 kg

DRUGS (6)
  1. DARZALEX FASPRO [Suspect]
     Active Substance: DARATUMUMAB\HYALURONIDASE-FIHJ
     Indication: Plasma cell myeloma
     Route: 058
     Dates: start: 20230425, end: 20230425
  2. DARZALEX FASPRO [Suspect]
     Active Substance: DARATUMUMAB\HYALURONIDASE-FIHJ
     Route: 058
     Dates: start: 20230509, end: 20230523
  3. ELRANATAMAB [Suspect]
     Active Substance: ELRANATAMAB
     Indication: Plasma cell myeloma
     Dosage: FIRST REGIMEN
     Route: 058
     Dates: start: 20230404, end: 20230404
  4. ELRANATAMAB [Suspect]
     Active Substance: ELRANATAMAB
     Dosage: SECOND REGIMEN
     Route: 058
     Dates: start: 20230411
  5. ELRANATAMAB [Suspect]
     Active Substance: ELRANATAMAB
     Dosage: THIRD REGIMEN
     Route: 058
     Dates: start: 20230418, end: 20230425
  6. ELRANATAMAB [Suspect]
     Active Substance: ELRANATAMAB
     Dosage: FOURTH REGIMEN
     Route: 058
     Dates: start: 20230509, end: 20230523

REACTIONS (2)
  - Pneumonia bacterial [Recovered/Resolved]
  - Intentional product use issue [Unknown]

NARRATIVE: CASE EVENT DATE: 20230704
